FAERS Safety Report 9613405 (Version 2)
Quarter: 2014Q1

REPORT INFORMATION
  Report Type: Report from Study
  Country: US (occurrence: US)
  Receive Date: 20131010
  Receipt Date: 20140328
  Transmission Date: 20141002
  Serious: Yes (Disabling, Other)
  Sender: FDA-Public Use
  Company Number: US-ABBVIE-13P-163-1153512-00

PATIENT
  Age: 50 Year
  Sex: Male
  Weight: 81.72 kg

DRUGS (6)
  1. HUMIRA [Suspect]
     Indication: CROHN^S DISEASE
     Route: 050
     Dates: start: 2006, end: 201401
  2. XANAX [Suspect]
     Indication: STRESS
     Dates: start: 201306
  3. PENTASA [Concomitant]
     Indication: CROHN^S DISEASE
  4. VITAMIN B12 [Concomitant]
     Indication: PRODUCT USED FOR UNKNOWN INDICATION
     Dosage: DAILY
  5. VITAMIN D [Concomitant]
     Indication: PRODUCT USED FOR UNKNOWN INDICATION
     Dosage: DAILY
  6. SIMVASTATIN [Concomitant]
     Indication: FAMILIAL RISK FACTOR

REACTIONS (16)
  - Ileal stenosis [Recovered/Resolved]
  - Gait disturbance [Unknown]
  - Sensory disturbance [Unknown]
  - Weight decreased [Unknown]
  - Night sweats [Unknown]
  - Oesophageal stenosis [Unknown]
  - Vision blurred [Recovered/Resolved with Sequelae]
  - Panic attack [Unknown]
  - Anxiety [Unknown]
  - Hypoaesthesia [Unknown]
  - Drug ineffective [Not Recovered/Not Resolved]
  - Dizziness [Not Recovered/Not Resolved]
  - Vomiting [Unknown]
  - Diarrhoea [Unknown]
  - Hypertension [Recovered/Resolved]
  - Abdominal pain [Unknown]
